FAERS Safety Report 19331551 (Version 2)
Quarter: 2021Q3

REPORT INFORMATION
  Report Type: Spontaneous
  Country: FR (occurrence: FR)
  Receive Date: 20210528
  Receipt Date: 20210702
  Transmission Date: 20211014
  Serious: Yes (Other)
  Sender: FDA-Public Use
  Company Number: FR-PFIZER INC-2021573189

PATIENT
  Age: 62 Year
  Sex: Female
  Weight: 51 kg

DRUGS (4)
  1. FOLFOX [Suspect]
     Active Substance: FLUOROURACIL\LEUCOVORIN CALCIUM\OXALIPLATIN
     Indication: VITAMIN SUPPLEMENTATION
     Dosage: UNK
     Dates: end: 202105
  2. CAMPTO [Suspect]
     Active Substance: IRINOTECAN
     Indication: COLORECTAL CANCER
     Dosage: UNK
     Route: 042
     Dates: start: 202103, end: 202105
  3. COMIRNATY [Suspect]
     Active Substance: TOZINAMERAN
     Indication: COVID-19 IMMUNISATION
     Dosage: DOSE 1, SINGLE
     Route: 030
     Dates: start: 20210315, end: 20210315
  4. ERBITUX [Suspect]
     Active Substance: CETUXIMAB
     Indication: COLORECTAL CANCER
     Dosage: UNK
     Route: 042
     Dates: start: 202103, end: 202105

REACTIONS (1)
  - Jugular vein thrombosis [Not Recovered/Not Resolved]

NARRATIVE: CASE EVENT DATE: 202104
